FAERS Safety Report 9132409 (Version 1)
Quarter: 2013Q1

REPORT INFORMATION
  Report Type: Report from Study
  Country: US (occurrence: US)
  Receive Date: 20130301
  Receipt Date: 20130301
  Transmission Date: 20140127
  Serious: Yes (Hospitalization)
  Sender: FDA-Public Use
  Company Number: US-GLAXOSMITHKLINE-A0920404A

PATIENT
  Age: 47 Day
  Sex: Female
  Weight: 93.6 kg

DRUGS (18)
  1. LAPATINIB [Suspect]
     Indication: BREAST CANCER
     Dosage: 750MG PER DAY
     Route: 048
     Dates: start: 20101217
  2. DOCETAXEL [Suspect]
     Indication: BREAST CANCER
     Dosage: 75MGM2 EVERY 3 WEEKS
     Route: 042
     Dates: start: 20101217
  3. CARBOPLATIN [Suspect]
     Indication: BREAST CANCER
     Route: 042
     Dates: start: 20101217
  4. ACETAMINOPHEN [Concomitant]
     Dosage: 650MG AS REQUIRED
     Route: 048
     Dates: start: 20110115
  5. ACYCLOVIR [Concomitant]
     Dosage: 800MG FIVE TIMES PER DAY
     Route: 048
     Dates: start: 20110116, end: 20110129
  6. ACYCLOVIR [Concomitant]
     Dosage: 910MG THREE TIMES PER DAY
     Route: 042
     Dates: start: 20110115, end: 20110116
  7. CLINDAMYCIN [Concomitant]
     Dosage: 300MG FOUR TIMES PER DAY
     Route: 048
     Dates: start: 20110116, end: 20110124
  8. LOVENOX [Concomitant]
     Route: 058
  9. NYSTATIN [Concomitant]
     Dosage: 1APP VARIABLE DOSE
     Dates: start: 20110115, end: 20110124
  10. PROTONIX [Concomitant]
     Dosage: 40MG PER DAY
     Route: 048
     Dates: start: 20110115, end: 20110117
  11. VALTREX [Concomitant]
     Dosage: 1G THREE TIMES PER DAY
     Route: 048
     Dates: start: 20110117, end: 20110124
  12. VANCOMYCIN [Concomitant]
     Dosage: 1250MG THREE TIMES PER DAY
     Route: 042
     Dates: start: 20110114, end: 20110116
  13. VANCOMYCIN [Concomitant]
     Dosage: 1G SINGLE DOSE
     Route: 042
  14. GCSF [Concomitant]
     Route: 058
     Dates: start: 20101220
  15. LANSOPRAZOLE [Concomitant]
     Dates: start: 201010
  16. IBUPROFEN [Concomitant]
     Dates: start: 201011
  17. HYDROCODONE [Concomitant]
     Dates: start: 201011
  18. COMPAZINE [Concomitant]
     Dates: start: 20101130

REACTIONS (1)
  - Wound infection [Recovered/Resolved]
